FAERS Safety Report 17510160 (Version 7)
Quarter: 2020Q2

REPORT INFORMATION
  Report Type: Spontaneous
  Country: US (occurrence: US)
  Receive Date: 20200306
  Receipt Date: 20200626
  Transmission Date: 20200713
  Serious: No
  Sender: FDA-Public Use
  Company Number: US-PFIZER INC-2020099553

PATIENT
  Age: 55 Year
  Sex: Male
  Weight: 102 kg

DRUGS (8)
  1. FISH OIL [Concomitant]
     Active Substance: FISH OIL
     Dosage: 2 DF, DAILY
  2. LYRICA CR [Suspect]
     Active Substance: PREGABALIN
     Dosage: 100 MG, 2X/DAY
     Route: 048
     Dates: start: 20200327, end: 20200328
  3. LYRICA CR [Suspect]
     Active Substance: PREGABALIN
     Dosage: 100 MG, 1X/DAY
     Route: 048
     Dates: start: 20200326, end: 20200326
  4. FISH OIL [Concomitant]
     Active Substance: FISH OIL
     Indication: BLOOD DISORDER
     Dosage: 3 DF, DAILY
  5. LYRICA CR [Suspect]
     Active Substance: PREGABALIN
     Indication: VEIN DISORDER
     Dosage: 100 MG, 3X/DAY
     Route: 048
     Dates: start: 2010
  6. LYRICA CR [Suspect]
     Active Substance: PREGABALIN
     Indication: PAIN IN EXTREMITY
     Dosage: 100 MG, 2X/DAY
     Route: 048
     Dates: start: 20200325, end: 20200325
  7. LYRICA CR [Suspect]
     Active Substance: PREGABALIN
     Indication: NEURALGIA
     Dosage: 100 MG, 2X/DAY
     Route: 048
  8. LYRICA CR [Suspect]
     Active Substance: PREGABALIN
     Dosage: 100 MG, 3X/DAY
     Route: 048

REACTIONS (7)
  - Dyslexia [Unknown]
  - Headache [Recovered/Resolved]
  - Weight decreased [Unknown]
  - Therapeutic response unexpected [Unknown]
  - Intentional product misuse [Unknown]
  - Amnesia [Unknown]
  - Intentional product use issue [Unknown]

NARRATIVE: CASE EVENT DATE: 2010
